FAERS Safety Report 13388075 (Version 1)
Quarter: 2017Q1

REPORT INFORMATION
  Report Type: Spontaneous
  Country: US (occurrence: US)
  Receive Date: 20170330
  Receipt Date: 20170330
  Transmission Date: 20170429
  Serious: No
  Sender: FDA-Public Use
  Company Number: US-TARO-2017TAR00105

PATIENT
  Sex: Female

DRUGS (1)
  1. NYSTATIN ORAL SUSPENSION USP 100,000 UNITS/ML [Suspect]
     Active Substance: NYSTATIN

REACTIONS (1)
  - Abdominal discomfort [Unknown]
